FAERS Safety Report 21311277 (Version 1)
Quarter: 2022Q3

REPORT INFORMATION
  Report Type: Spontaneous
  Country: US (occurrence: None)
  Receive Date: 20220909
  Receipt Date: 20220909
  Transmission Date: 20221026
  Serious: No
  Sender: FDA-Public Use
  Company Number: US-FARMAPROD-202202-0257

PATIENT
  Sex: Female

DRUGS (19)
  1. OXERVATE [Suspect]
     Active Substance: CENEGERMIN-BKBJ
     Indication: Neurotrophic keratopathy
     Route: 047
     Dates: start: 20220131
  2. INSULIN ASPART [Concomitant]
     Active Substance: INSULIN ASPART
     Dosage: 100/ML VIAL
  3. METOLAZONE [Concomitant]
     Active Substance: METOLAZONE
  4. METFORMIN ER GASTRIC [Concomitant]
  5. GABAPENTIN [Concomitant]
     Active Substance: GABAPENTIN
  6. POTASSIUM CHLORIDE [Concomitant]
     Active Substance: POTASSIUM CHLORIDE
     Dosage: 20 MILLIEQUIVALENTS TABLET EXTENDED RELEASE
  7. PIOGLITAZONE [Concomitant]
     Active Substance: PIOGLITAZONE
  8. ACETAMINOPHEN\OXYCODONE HYDROCHLORIDE [Concomitant]
     Active Substance: ACETAMINOPHEN\OXYCODONE HYDROCHLORIDE
  9. MONTELUKAST SODIUM [Concomitant]
     Active Substance: MONTELUKAST SODIUM
  10. TRAZODONE HCL [Concomitant]
     Active Substance: TRAZODONE HYDROCHLORIDE
  11. FLUOXETINE HYDROCHLORIDE [Concomitant]
     Active Substance: FLUOXETINE HYDROCHLORIDE
  12. DULOXETINE HYDROCHLORIDE [Concomitant]
     Active Substance: DULOXETINE HYDROCHLORIDE
     Dosage: DELAYED RELEASE
  13. ATORVASTATIN CALCIUM [Concomitant]
     Active Substance: ATORVASTATIN CALCIUM
  14. ESOMEPRAZOLE MAGNESIUM [Concomitant]
     Active Substance: ESOMEPRAZOLE MAGNESIUM
  15. BETAMETHASONE VALERATE [Concomitant]
     Active Substance: BETAMETHASONE VALERATE
  16. LATANOPROST [Concomitant]
     Active Substance: LATANOPROST
  17. DORZOLAMIDE\TIMOLOL [Concomitant]
     Active Substance: DORZOLAMIDE\TIMOLOL
  18. CIPROFLOXACIN [Concomitant]
     Active Substance: CIPROFLOXACIN
  19. DEXAMETHASONE [Concomitant]
     Active Substance: DEXAMETHASONE

REACTIONS (9)
  - Product dose omission issue [Unknown]
  - Eye irritation [Unknown]
  - Facial pain [Unknown]
  - Nasal discomfort [Unknown]
  - Eye pain [Unknown]
  - Lacrimation increased [Unknown]
  - Headache [Unknown]
  - Rhinorrhoea [Unknown]
  - Fatigue [Unknown]
